FAERS Safety Report 10554695 (Version 1)
Quarter: 2014Q4

REPORT INFORMATION
  Report Type: Spontaneous
  Country: AU (occurrence: AU)
  Receive Date: 20141030
  Receipt Date: 20141030
  Transmission Date: 20150529
  Serious: Yes (Other)
  Sender: FDA-Public Use
  Company Number: AU-BAXTER-2014BAX063104

PATIENT
  Age: 69 Year
  Sex: Male

DRUGS (2)
  1. KIOVIG [Suspect]
     Active Substance: HUMAN IMMUNOGLOBULIN G
     Indication: OFF LABEL USE
  2. KIOVIG [Suspect]
     Active Substance: HUMAN IMMUNOGLOBULIN G
     Indication: CHRONIC INFLAMMATORY DEMYELINATING POLYRADICULONEUROPATHY
     Route: 042
     Dates: start: 20140811, end: 20140814

REACTIONS (6)
  - Rash erythematous [Recovering/Resolving]
  - Vomiting [Recovering/Resolving]
  - Nausea [Recovering/Resolving]
  - Abdominal discomfort [Recovering/Resolving]
  - Rash generalised [Recovering/Resolving]
  - Exfoliative rash [Recovering/Resolving]

NARRATIVE: CASE EVENT DATE: 20140814
